FAERS Safety Report 9346371 (Version 2)
Quarter: 2013Q2

REPORT INFORMATION
  Report Type: Spontaneous
  Country: US (occurrence: US)
  Receive Date: 20130613
  Receipt Date: 20130624
  Transmission Date: 20140414
  Serious: Yes (Other)
  Sender: FDA-Public Use
  Company Number: US-PFIZER INC-2013177180

PATIENT
  Age: 58 Year
  Sex: Male
  Weight: 96.15 kg

DRUGS (14)
  1. NEURONTIN [Suspect]
     Indication: NEUROPATHY PERIPHERAL
     Dosage: 800 MG, 3X/DAY
     Route: 048
  2. NEURONTIN [Suspect]
     Indication: BONE DISORDER
  3. NEURONTIN [Suspect]
     Indication: NERVE INJURY
  4. OXYCODONE [Concomitant]
     Dosage: 10 MG, UNK
  5. METFORMIN [Concomitant]
     Dosage: 1000 MG, UNK
  6. DILTIAZEM [Concomitant]
     Dosage: 240 MG, UNK
  7. RANITIDINE [Concomitant]
     Dosage: 150 MG, UNK
  8. LORATADINE [Concomitant]
     Dosage: 10 MG, UNK
  9. LISINOPRIL W/HYDROCHLOROTHIAZIDE [Concomitant]
     Dosage: 20/25 MG, UNK
  10. ACTOS [Concomitant]
     Dosage: 15 MG, UNK
  11. SIMVASTATIN [Concomitant]
     Dosage: 40 MG, UNK
  12. ASPIRIN [Concomitant]
     Dosage: 81 MG, UNK
  13. ALBUTEROL [Concomitant]
     Dosage: UNK
  14. GLYBURIDE [Concomitant]
     Dosage: 5 MG, UNK

REACTIONS (4)
  - Off label use [Unknown]
  - Accident [Unknown]
  - Ankle fracture [Unknown]
  - Blood cholesterol increased [Unknown]
